FAERS Safety Report 8477157-9 (Version None)
Quarter: 2012Q2

REPORT INFORMATION
  Report Type: 
  Country: None (occurrence: None)
  Receive Date: 20120625
  Receipt Date: 20120625
  Transmission Date: 20120825
  Serious: Yes (Other)
  Sender: FDA-Public Use
  Company Number: None

PATIENT
  Sex: Male

DRUGS (2)
  1. RIBAVIRIN [Suspect]
     Dosage: 600MG BID PO
     Route: 048
     Dates: start: 20120301
  2. PEGASYS [Suspect]
     Dosage: 180MCG SQ ONCE WEEKLY
     Route: 058
     Dates: start: 20120301

REACTIONS (1)
  - ANAEMIA [None]
